FAERS Safety Report 14142689 (Version 1)
Quarter: 2017Q4

REPORT INFORMATION
  Report Type: Spontaneous
  Country: US (occurrence: None)
  Receive Date: 20171030
  Receipt Date: 20171030
  Transmission Date: 20180321
  Serious: Yes (Hospitalization)
  Sender: FDA-Public Use
  Company Number: None

PATIENT
  Age: 62 Year
  Sex: Male
  Weight: 91 kg

DRUGS (17)
  1. HYDROCHLOROTHIAZIDE. [Concomitant]
     Active Substance: HYDROCHLOROTHIAZIDE
  2. HYDROCORTISONE CREAM [Concomitant]
     Active Substance: HYDROCORTISONE
  3. EMLA [Concomitant]
     Active Substance: LIDOCAINE\PRILOCAINE
  4. LOBERAMINDE [Concomitant]
  5. TYLENOL [Concomitant]
     Active Substance: ACETAMINOPHEN
  6. BENADRYL [Concomitant]
     Active Substance: DIPHENHYDRAMINE HYDROCHLORIDE
  7. POTASSIUM [Concomitant]
     Active Substance: POTASSIUM
  8. NAP - PACLITAXEL [Suspect]
     Active Substance: PACLITAXEL
  9. ATORVOSTATIN [Concomitant]
     Active Substance: ATORVASTATIN
  10. NITROGLYCERIN. [Concomitant]
     Active Substance: NITROGLYCERIN
  11. GEMCITABINE [Suspect]
     Active Substance: GEMCITABINE\GEMCITABINE HYDROCHLORIDE
     Indication: PANCREATIC CARCINOMA
     Dosage: 28DAYCYCLE IV
     Route: 042
     Dates: start: 20170227, end: 20170411
  12. AMLODIPINE [Concomitant]
     Active Substance: AMLODIPINE BESYLATE
  13. ROBITUSSIN DM [Concomitant]
     Active Substance: DEXTROMETHORPHAN HYDROBROMIDE\GUAIFENESIN
  14. CHEMORADIATION 5-FU [Suspect]
     Active Substance: FLUOROURACIL SODIUM
     Indication: PANCREATIC CARCINOMA
     Dosage: 5EDAY/WEEK EXTERNAL BEAM IV PUMP
     Dates: start: 20170502, end: 20170609
  15. CANDESARTAN. [Concomitant]
     Active Substance: CANDESARTAN
  16. METFORMIN [Concomitant]
     Active Substance: METFORMIN HYDROCHLORIDE
  17. ALLEGRA [Concomitant]
     Active Substance: FEXOFENADINE HYDROCHLORIDE

REACTIONS (2)
  - Cellulitis [None]
  - Erythema [None]

NARRATIVE: CASE EVENT DATE: 20171025
